FAERS Safety Report 18178579 (Version 1)
Quarter: 2020Q3

REPORT INFORMATION
  Report Type: Spontaneous
  Country: US (occurrence: US)
  Receive Date: 20200820
  Receipt Date: 20200820
  Transmission Date: 20201103
  Serious: No
  Sender: FDA-Public Use
  Company Number: US-JNJFOC-20200826076

PATIENT

DRUGS (3)
  1. RISPERDAL [Suspect]
     Active Substance: RISPERIDONE
     Route: 065
  2. RISPERDAL [Suspect]
     Active Substance: RISPERIDONE
     Indication: PRODUCT USED FOR UNKNOWN INDICATION
     Route: 065
  3. RISPERDAL [Suspect]
     Active Substance: RISPERIDONE
     Route: 065

REACTIONS (1)
  - Hypoglycaemia [Unknown]

NARRATIVE: CASE EVENT DATE: 20200812
